FAERS Safety Report 17704593 (Version 1)
Quarter: 2020Q2

REPORT INFORMATION
  Report Type: Report from Study
  Country: IE (occurrence: IE)
  Receive Date: 20200424
  Receipt Date: 20200424
  Transmission Date: 20200714
  Serious: Yes (Other)
  Sender: FDA-Public Use
  Company Number: IE-EMD SERONO-9158259

PATIENT
  Sex: Female

DRUGS (4)
  1. SAIZEN [Suspect]
     Active Substance: SOMATROPIN
     Dosage: FREQUENCY CHANGED TO ONCE DAILY TO EVERY OTHER DAY
  2. SAIZEN [Suspect]
     Active Substance: SOMATROPIN
     Indication: GROWTH HORMONE DEFICIENCY
     Dosage: SAIZEN 6MG LIQUID CARTRIDGE
     Route: 058
     Dates: start: 20161110, end: 20170220
  3. SAIZEN [Suspect]
     Active Substance: SOMATROPIN
     Route: 057
  4. SAIZEN [Suspect]
     Active Substance: SOMATROPIN
     Dosage: SAIZEN 6MG LIQUID CARTRIDGE
     Route: 058
     Dates: start: 20170221

REACTIONS (3)
  - Musculoskeletal stiffness [Recovered/Resolved]
  - Off label use [Unknown]
  - Cataract [Unknown]

NARRATIVE: CASE EVENT DATE: 2016
